FAERS Safety Report 7430255-0 (Version None)
Quarter: 2011Q2

REPORT INFORMATION
  Report Type: 
  Country: None (occurrence: None)
  Receive Date: 20110421
  Receipt Date: 20100924
  Transmission Date: 20111010
  Serious: No
  Sender: FDA-Public Use
  Company Number: US-ASTRAZENECA-2010SE45443

PATIENT
  Sex: Female

DRUGS (6)
  1. NEXIUM [Concomitant]
     Route: 048
     Dates: start: 20100924
  2. DIAZEPAM [Suspect]
     Route: 065
  3. LIPITOR [Suspect]
     Route: 065
  4. BETA ADRENERGIC BLOCKERS [Suspect]
     Route: 065
  5. TOPROL-XL [Suspect]
     Route: 048
  6. REGLAN [Suspect]
     Route: 065

REACTIONS (1)
  - DRUG HYPERSENSITIVITY [None]
